FAERS Safety Report 5445826-0 (Version None)
Quarter: 2007Q3

REPORT INFORMATION
  Report Type: 
  Country: None (occurrence: None)
  Receive Date: 20070904
  Receipt Date: 20070820
  Transmission Date: 20080115
  Serious: Yes (Other)
  Sender: FDA-Public Use
  Company Number: 2007RR-09474

PATIENT
  Age: 12 Year
  Sex: Female

DRUGS (4)
  1. IBUPROFEN [Suspect]
  2. POLYMYXIN (POLYMYXIN) [Suspect]
  3. TOBRAMYCIN [Suspect]
     Dosage: 4.08 MG/KG, BID, INTRAVENOUS
     Route: 042
  4. COLISTIN (COLISTIN) [Concomitant]

REACTIONS (1)
  - RENAL FAILURE ACUTE [None]
